FAERS Safety Report 7605871-3 (Version None)
Quarter: 2011Q3

REPORT INFORMATION
  Report Type: 
  Country: None (occurrence: None)
  Receive Date: 20110713
  Receipt Date: 20110705
  Transmission Date: 20111222
  Serious: Yes (Death)
  Sender: FDA-Public Use
  Company Number: US-PFIZER INC-2011149974

PATIENT
  Sex: Female

DRUGS (1)
  1. SUTENT [Suspect]
     Indication: MALIGNANT URINARY TRACT NEOPLASM
     Dosage: 37.5 MG, 1X/DAY, (25 MG AND 12.5 MG CAPSULES EACH)
     Route: 048

REACTIONS (2)
  - MALIGNANT URINARY TRACT NEOPLASM [None]
  - DISEASE PROGRESSION [None]
